FAERS Safety Report 7994564-9 (Version None)
Quarter: 2011Q4

REPORT INFORMATION
  Report Type: 
  Country: None (occurrence: None)
  Receive Date: 20111220
  Receipt Date: 20111215
  Transmission Date: 20120403
  Serious: Yes (Other)
  Sender: FDA-Public Use
  Company Number: US-PFIZER INC-2011307794

PATIENT

DRUGS (1)
  1. PRISTIQ [Suspect]
     Dosage: 50 MG, UNK
     Dates: start: 20110101

REACTIONS (1)
  - URINARY RETENTION [None]
